FAERS Safety Report 12156936 (Version 1)
Quarter: 2016Q1

REPORT INFORMATION
  Report Type: Report from Study
  Country: DE (occurrence: FR)
  Receive Date: 20160307
  Receipt Date: 20160307
  Transmission Date: 20160526
  Serious: Yes (Death, Other)
  Sender: FDA-Public Use
  Company Number: DE-ACTELION-A-US2016-132535

PATIENT
  Age: 68 Year
  Sex: Male

DRUGS (1)
  1. VENTAVIS [Suspect]
     Active Substance: ILOPROST
     Indication: PULMONARY HYPERTENSION
     Dosage: 5 DF, 6/D
     Route: 055

REACTIONS (4)
  - Fall [Unknown]
  - Death [Fatal]
  - Altered state of consciousness [Unknown]
  - Product use issue [Unknown]

NARRATIVE: CASE EVENT DATE: 20160229
